FAERS Safety Report 15307565 (Version 7)
Quarter: 2019Q1

REPORT INFORMATION
  Report Type: Spontaneous
  Country: FR (occurrence: FR)
  Receive Date: 20180822
  Receipt Date: 20190114
  Transmission Date: 20190417
  Serious: Yes (Death, Other)
  Sender: FDA-Public Use
  Company Number: FR-ELI_LILLY_AND_COMPANY-FR201808009176

PATIENT
  Age: 45 Year
  Sex: Male

DRUGS (13)
  1. THERALENE [Interacting]
     Active Substance: TRIMEPRAZINE
     Indication: INTENTIONAL OVERDOSE
  2. ZYPREXA [Suspect]
     Active Substance: OLANZAPINE
     Indication: SUICIDE ATTEMPT
     Dosage: 10 MG, EACH EVENING
     Route: 065
  3. NORDAZ [Interacting]
     Active Substance: NORDAZEPAM
     Indication: INTENTIONAL OVERDOSE
  4. OXAZEPAM. [Interacting]
     Active Substance: OXAZEPAM
     Indication: SUICIDE ATTEMPT
     Dosage: UNK UNK, UNKNOWN
     Route: 065
  5. OXAZEPAM. [Interacting]
     Active Substance: OXAZEPAM
     Indication: INTENTIONAL OVERDOSE
  6. THERALENE [Interacting]
     Active Substance: TRIMEPRAZINE
     Indication: SUICIDE ATTEMPT
     Dosage: UNK UNK, UNKNOWN
     Route: 065
  7. NORDAZ [Interacting]
     Active Substance: NORDAZEPAM
     Indication: SUICIDE ATTEMPT
     Dosage: UNK UNK, UNKNOWN
     Route: 065
  8. LYSANXIA [Interacting]
     Active Substance: PRAZEPAM
     Indication: INTENTIONAL OVERDOSE
     Dosage: 10 MG, EACH EVENING
     Route: 065
  9. ZYPREXA [Interacting]
     Active Substance: OLANZAPINE
     Indication: INTENTIONAL OVERDOSE
     Dosage: UNK UNK, UNKNOWN
     Route: 065
  10. MIANSERINE                         /00390601/ [Interacting]
     Active Substance: MIANSERIN
     Indication: SUICIDE ATTEMPT
     Dosage: UNK UNK, UNKNOWN
     Route: 065
  11. MIANSERINE                         /00390601/ [Interacting]
     Active Substance: MIANSERIN
     Indication: INTENTIONAL OVERDOSE
  12. TERCIAN                            /00759301/ [Interacting]
     Active Substance: CYAMEMAZINE
     Indication: SUICIDE ATTEMPT
     Dosage: UNK UNK, UNKNOWN
     Route: 005
  13. TERCIAN                            /00759301/ [Interacting]
     Active Substance: CYAMEMAZINE
     Indication: INTENTIONAL OVERDOSE

REACTIONS (10)
  - Intentional overdose [Fatal]
  - Cardiovascular disorder [Fatal]
  - Cardiopulmonary failure [Fatal]
  - Completed suicide [Fatal]
  - Hepatic cirrhosis [Fatal]
  - Pulmonary oedema [Fatal]
  - Respiratory depression [Fatal]
  - Toxicity to various agents [Fatal]
  - Drug interaction [Fatal]
  - Altered state of consciousness [Fatal]
